FAERS Safety Report 8845990 (Version 1)
Quarter: 2012Q4

REPORT INFORMATION
  Report Type: 
  Country: BR (occurrence: BR)
  Receive Date: 20121017
  Receipt Date: 20121017
  Transmission Date: 20130627
  Serious: Yes (Hospitalization, Disabling, Other)
  Sender: FDA-Public Use
  Company Number: BR-MERCK-1210BRA007177

PATIENT
  Sex: Female

DRUGS (2)
  1. PEG-INTRON [Suspect]
     Indication: HEPATITIS C
     Dosage: 80 Microgram, UNK
     Route: 058
     Dates: start: 20120809, end: 20120820
  2. RIBAVIRIN [Concomitant]
     Indication: HEPATITIS C
     Dosage: 1250 mg, qd
     Dates: start: 20120809, end: 20120820

REACTIONS (3)
  - Polyneuropathy [Not Recovered/Not Resolved]
  - Convulsion [Unknown]
  - Paraesthesia [Not Recovered/Not Resolved]
